FAERS Safety Report 16951941 (Version 3)
Quarter: 2019Q4

REPORT INFORMATION
  Report Type: Spontaneous
  Country: CN (occurrence: CN)
  Receive Date: 20191023
  Receipt Date: 20191029
  Transmission Date: 20200122
  Serious: Yes (Other)
  Sender: FDA-Public Use
  Company Number: CN-PFIZER INC-2019444764

PATIENT
  Age: 39 Year
  Sex: Male

DRUGS (2)
  1. METHYLPREDNISOLONE SODIUM SUCCINATE. [Suspect]
     Active Substance: METHYLPREDNISOLONE SODIUM SUCCINATE
     Indication: MYELITIS
     Dosage: 1000 MG
     Route: 041
     Dates: start: 20140214
  2. SODIUM CHLORIDE. [Concomitant]
     Active Substance: SODIUM CHLORIDE
     Indication: MYELITIS
     Dosage: 500 ML, UNK
     Route: 042
     Dates: start: 20140214

REACTIONS (2)
  - Condition aggravated [Unknown]
  - Paraplegia [Unknown]
